FAERS Safety Report 23877114 (Version 3)
Quarter: 2024Q3

REPORT INFORMATION
  Report Type: Spontaneous
  Country: JP (occurrence: JP)
  Receive Date: 20240521
  Receipt Date: 20240705
  Transmission Date: 20241016
  Serious: Yes (Other)
  Sender: ROCHE
  Company Number: JP-002147023-NVSJ2024JP005652

PATIENT
  Age: 57 Year
  Sex: Male

DRUGS (3)
  1. XOLAIR [Suspect]
     Active Substance: OMALIZUMAB
     Indication: Chronic spontaneous urticaria
     Dosage: 300 MG
     Route: 058
     Dates: start: 20240409, end: 20240409
  2. BILASTINE [Concomitant]
     Active Substance: BILASTINE
     Indication: Chronic spontaneous urticaria
     Dosage: UNK
     Route: 065
     Dates: start: 202402
  3. CLEMASTINE FUMARATE [Concomitant]
     Active Substance: CLEMASTINE FUMARATE
     Indication: Chronic spontaneous urticaria
     Dosage: UNK
     Route: 065
     Dates: start: 202402

REACTIONS (5)
  - Urinary retention [Recovering/Resolving]
  - Headache [Recovering/Resolving]
  - Malaise [Recovering/Resolving]
  - Dysuria [Recovering/Resolving]
  - Urinary tract infection [Unknown]

NARRATIVE: CASE EVENT DATE: 20240409
